FAERS Safety Report 19844257 (Version 1)
Quarter: 2021Q3

REPORT INFORMATION
  Report Type: Spontaneous
  Country: CA (occurrence: CA)
  Receive Date: 20210916
  Receipt Date: 20210916
  Transmission Date: 20211014
  Serious: Yes (Life-Threatening)
  Sender: FDA-Public Use
  Company Number: CA-PFIZER INC-202101151251

PATIENT
  Age: 79 Year
  Sex: Male

DRUGS (1)
  1. VANCOMYCIN HCL [Suspect]
     Active Substance: VANCOMYCIN HYDROCHLORIDE
     Dosage: 1250 IU, SINGLE
     Route: 041

REACTIONS (4)
  - Swollen tongue [Unknown]
  - Hypoaesthesia oral [Unknown]
  - Lip swelling [Unknown]
  - Paraesthesia oral [Unknown]
